FAERS Safety Report 17910377 (Version 1)
Quarter: 2020Q2

REPORT INFORMATION
  Report Type: Spontaneous
  Country: CN (occurrence: CN)
  Receive Date: 20200618
  Receipt Date: 20200618
  Transmission Date: 20200714
  Serious: Yes (Other)
  Sender: FDA-Public Use
  Company Number: CN-LUPIN PHARMACEUTICALS INC.-2019-04311

PATIENT
  Age: 60 Year
  Sex: Female
  Weight: 57.5 kg

DRUGS (2)
  1. VANCOMYCIN [Suspect]
     Active Substance: VANCOMYCIN
     Indication: PLEURAL EFFUSION
     Dosage: 1 GRAM, BID,1 HOUR INFUSION
     Route: 065
     Dates: start: 20151018
  2. CEFODIZIME [Concomitant]
     Active Substance: CEFODIZIME SODIUM
     Indication: PLEURAL EFFUSION
     Dosage: UNK
     Route: 065
     Dates: start: 20151018

REACTIONS (1)
  - Acute kidney injury [Recovering/Resolving]
